FAERS Safety Report 7714772-1 (Version None)
Quarter: 2011Q3

REPORT INFORMATION
  Report Type: 
  Country: None (occurrence: None)
  Receive Date: 20110829
  Receipt Date: 20110815
  Transmission Date: 20111222
  Serious: No
  Sender: FDA-Public Use
  Company Number: US-JNJFOC-20110807303

PATIENT
  Sex: Male
  Weight: 92.08 kg

DRUGS (2)
  1. INVEGA [Suspect]
     Route: 048
     Dates: start: 20110816
  2. INVEGA [Suspect]
     Indication: BIPOLAR DISORDER
     Route: 048
     Dates: start: 20110815, end: 20110816

REACTIONS (1)
  - DIZZINESS [None]
